FAERS Safety Report 7465679-9 (Version None)
Quarter: 2011Q2

REPORT INFORMATION
  Report Type: 
  Country: None (occurrence: None)
  Receive Date: 20110509
  Receipt Date: 20110505
  Transmission Date: 20111010
  Serious: Yes (Death)
  Sender: FDA-Public Use
  Company Number: A0926421A

PATIENT
  Sex: Female

DRUGS (9)
  1. MAGIC MOUTHWASH [Concomitant]
  2. POTASSIUM CHLORIDE [Concomitant]
  3. TOPOTECAN [Suspect]
     Route: 042
     Dates: start: 20110307, end: 20110421
  4. FLAGYL [Concomitant]
  5. LOMOTIL [Concomitant]
  6. AVASTIN [Suspect]
     Route: 042
     Dates: start: 20110307, end: 20110421
  7. CISPLATIN [Suspect]
     Route: 042
     Dates: start: 20110307, end: 20110421
  8. VICODIN [Concomitant]
  9. METRONIDAZOLE [Concomitant]

REACTIONS (1)
  - SUDDEN DEATH [None]
